FAERS Safety Report 6700353-5 (Version None)
Quarter: 2010Q2

REPORT INFORMATION
  Report Type: 
  Country: None (occurrence: None)
  Receive Date: 20100426
  Receipt Date: 20100414
  Transmission Date: 20101027
  Serious: Yes (Hospitalization)
  Sender: FDA-Public Use
  Company Number: DSJ-2010-06066

PATIENT
  Age: 48 Year
  Sex: Female
  Weight: 72 kg

DRUGS (3)
  1. OLMESARTAN MEDOXOMIL [Suspect]
     Indication: ESSENTIAL HYPERTENSION
     Dosage: 20 MG, PER ORAL, 40 MG, PER ORAL
     Route: 048
     Dates: start: 20091127, end: 20091224
  2. OLMESARTAN MEDOXOMIL [Suspect]
     Indication: ESSENTIAL HYPERTENSION
     Dosage: 20 MG, PER ORAL, 40 MG, PER ORAL
     Route: 048
     Dates: start: 20091225, end: 20100201
  3. NORVASC [Concomitant]

REACTIONS (1)
  - CEREBRAL HAEMORRHAGE [None]
